FAERS Safety Report 9342473 (Version 2)
Quarter: 2013Q3

REPORT INFORMATION
  Report Type: Report from Study
  Country: JP (occurrence: JP)
  Receive Date: 20130611
  Receipt Date: 20130709
  Transmission Date: 20140515
  Serious: No
  Sender: FDA-Public Use
  Company Number: PHHY2013JP058492

PATIENT
  Age: 78 Year
  Sex: Male

DRUGS (8)
  1. EXELON [Suspect]
     Indication: DEMENTIA ALZHEIMER^S TYPE
     Dosage: 4.5 MG, DAILY
     Route: 062
     Dates: start: 20121119, end: 20121216
  2. EXELON [Suspect]
     Dosage: 9 MG, DAILY
     Route: 062
     Dates: start: 20121217, end: 20130127
  3. EXELON [Suspect]
     Dosage: 13.5 MG, DAILY
     Route: 062
     Dates: start: 20130128, end: 20130224
  4. EXELON [Suspect]
     Dosage: 18 MG, DAILY
     Route: 062
     Dates: start: 20130225
  5. VOLTAREN [Suspect]
     Indication: FRACTURE
     Dosage: UNK UKN, UNK
     Route: 054
     Dates: end: 20130409
  6. AMLODIPINE [Concomitant]
     Indication: HYPERTENSION
     Dosage: 5 MG, UNK
     Route: 048
  7. BLOPRESS [Concomitant]
     Indication: HYPERTENSION
     Dosage: 8 MG, UNK
     Route: 048
  8. YOKUKAN-SAN [Concomitant]
     Dosage: 22.5 MG, UNK
     Route: 048

REACTIONS (5)
  - Red blood cell count decreased [Unknown]
  - Blood urea increased [Unknown]
  - Blood creatinine increased [Unknown]
  - Haemoglobin decreased [Unknown]
  - Gastric ulcer haemorrhage [Recovering/Resolving]
